FAERS Safety Report 7658944-3 (Version None)
Quarter: 2011Q3

REPORT INFORMATION
  Report Type: 
  Country: None (occurrence: None)
  Receive Date: 20110805
  Receipt Date: 20110728
  Transmission Date: 20111222
  Serious: Yes (Hospitalization)
  Sender: FDA-Public Use
  Company Number: NL-TEVA-294796GER

PATIENT
  Sex: Male
  Weight: 50 kg

DRUGS (4)
  1. CARBOPLATIN [Suspect]
     Indication: NON-SMALL CELL LUNG CANCER
     Route: 042
     Dates: start: 20060317
  2. VINORELBINE [Suspect]
     Indication: NON-SMALL CELL LUNG CANCER
     Route: 042
     Dates: start: 20060504
  3. RADIOTHERAPY [Concomitant]
     Dates: start: 20660515
  4. PACLITAXEL [Suspect]
     Dates: start: 20060317

REACTIONS (4)
  - ATRIAL FIBRILLATION [None]
  - CIRCULATORY COLLAPSE [None]
  - CACHEXIA [None]
  - PNEUMONIA [None]
